FAERS Safety Report 22389766 (Version 2)
Quarter: 2023Q2

REPORT INFORMATION
  Report Type: Spontaneous
  Country: BR (occurrence: BR)
  Receive Date: 20230531
  Receipt Date: 20230627
  Transmission Date: 20230721
  Serious: Yes (Hospitalization, Other)
  Sender: FDA-Public Use
  Company Number: BR-UCBSA-2023027453

PATIENT
  Sex: Male

DRUGS (4)
  1. VIMPAT [Suspect]
     Active Substance: LACOSAMIDE
     Indication: Seizure cluster
     Dosage: 100 MILLIGRAM, ONCE DAILY (QD)
     Route: 048
     Dates: start: 20230428
  2. VIMPAT [Suspect]
     Active Substance: LACOSAMIDE
     Dosage: 200 MILLIGRAM, ONCE DAILY (QD)
     Route: 048
  3. ESCITALOPRAM [Concomitant]
     Active Substance: ESCITALOPRAM OXALATE
     Indication: Depression
     Dosage: 12 DROPS IN THE MORNING
  4. TRAZODONE HYDROCHLORIDE [Concomitant]
     Active Substance: TRAZODONE HYDROCHLORIDE
     Indication: Dementia
     Dosage: 150 MILLIGRAM, ONCE DAILY (QD) AT NIGHT

REACTIONS (9)
  - Hypersensitivity [Unknown]
  - Hospitalisation [Unknown]
  - Depressed level of consciousness [Unknown]
  - Somnolence [Unknown]
  - Dysphagia [Unknown]
  - Feeding disorder [Unknown]
  - Erythema [Unknown]
  - Bursitis [Unknown]
  - Rash [Unknown]
